FAERS Safety Report 23001946 (Version 14)
Quarter: 2024Q4

REPORT INFORMATION
  Report Type: Spontaneous
  Country: JP (occurrence: JP)
  Receive Date: 20230928
  Receipt Date: 20241226
  Transmission Date: 20250115
  Serious: Yes (Hospitalization, Other)
  Sender: BIOGEN
  Company Number: JP-BIOGEN-2023BI01226241

PATIENT
  Age: 43 Year
  Sex: Female
  Weight: 40 kg

DRUGS (2)
  1. TYSABRI [Suspect]
     Active Substance: NATALIZUMAB
     Indication: Multiple sclerosis
     Dosage: DOSAGE OF 4 MG/KG EVERY 6 OR 7 WEEKS BUT 3 MG/KG ONCE A YEAR. ADMINISTERED 27 TIMES OVER A PERIOD...
     Route: 050
     Dates: start: 20200521, end: 20230803
  2. COPAXONE [Concomitant]
     Active Substance: GLATIRAMER ACETATE
     Indication: Multiple sclerosis
     Dosage: USUAL DOSE
     Route: 050
     Dates: start: 202312

REACTIONS (4)
  - Progressive multifocal leukoencephalopathy [Recovered/Resolved with Sequelae]
  - Immune reconstitution inflammatory syndrome [Recovered/Resolved with Sequelae]
  - COVID-19 [Unknown]
  - Prescribed underdose [Unknown]

NARRATIVE: CASE EVENT DATE: 20200401
